FAERS Safety Report 13910209 (Version 2)
Quarter: 2018Q4

REPORT INFORMATION
  Report Type: Spontaneous
  Country: FR (occurrence: FR)
  Receive Date: 20170828
  Receipt Date: 20181019
  Transmission Date: 20190204
  Serious: Yes (Hospitalization)
  Sender: FDA-Public Use
  Company Number: FR-TEVA-767055ROM

PATIENT
  Age: 41 Year
  Sex: Female

DRUGS (5)
  1. LUTENYL [Suspect]
     Active Substance: NOMEGESTROL ACETATE
     Indication: CONTRACEPTION
     Dosage: LONG-STANDING TREATMENT
     Route: 048
  2. OCTAGAM IMMUNE GLOBULIN (HUMAN) [Suspect]
     Active Substance: HUMAN IMMUNOGLOBULIN G
     Indication: HYPOGAMMAGLOBULINAEMIA
     Route: 042
     Dates: start: 2013, end: 201609
  3. LYRICA [Suspect]
     Active Substance: PREGABALIN
     Indication: NEUROPATHY PERIPHERAL
     Dosage: 6 DOSAGE FORMS DAILY; DAILY DOSE: 6 DOSAGE FORMS ;LONG-STANDING TREATMENT
     Route: 048
  4. ESTREVA [Suspect]
     Active Substance: ESTRADIOL
     Indication: CONTRACEPTION
     Dosage: LONG-STANDING TREATMENT
     Route: 048
  5. OCTAGAM IMMUNE GLOBULIN (HUMAN) [Suspect]
     Active Substance: HUMAN IMMUNOGLOBULIN G
     Route: 042
     Dates: start: 201612, end: 20170125

REACTIONS (1)
  - Cutaneous lupus erythematosus [Recovered/Resolved]

NARRATIVE: CASE EVENT DATE: 20161228
